FAERS Safety Report 17274592 (Version 1)
Quarter: 2020Q1

REPORT INFORMATION
  Report Type: Report from Study
  Country: None (occurrence: US)
  Receive Date: 20200115
  Receipt Date: 20200115
  Transmission Date: 20200409
  Serious: Yes (Other)
  Sender: FDA-Public Use
  Company Number: US-ABBVIE-19K-163-2814688-00

PATIENT
  Sex: Male

DRUGS (5)
  1. VENCLEXTA [Suspect]
     Active Substance: VENETOCLAX
     Dosage: TAKE 4 TABLET(S) BY MOUTH EVERY DAY
     Route: 048
     Dates: start: 2019
  2. VENCLEXTA [Suspect]
     Active Substance: VENETOCLAX
     Indication: CHRONIC LYMPHOCYTIC LEUKAEMIA
     Dosage: WEEK 1 (2X10MG TABS)
     Route: 048
     Dates: start: 201902, end: 2019
  3. VENCLEXTA [Suspect]
     Active Substance: VENETOCLAX
     Dosage: WEEK 2 (1X50MG TAB)
     Route: 048
     Dates: start: 2019, end: 2019
  4. VENCLEXTA [Suspect]
     Active Substance: VENETOCLAX
     Dosage: WEEK 3 (1X100MG TAB)
     Route: 048
     Dates: start: 2019, end: 2019
  5. VENCLEXTA [Suspect]
     Active Substance: VENETOCLAX
     Dosage: WEEK 4 (2X100MG TAB)
     Route: 048
     Dates: start: 2019, end: 2019

REACTIONS (3)
  - Fatigue [Recovered/Resolved]
  - Suicidal ideation [Unknown]
  - Fatigue [Not Recovered/Not Resolved]

NARRATIVE: CASE EVENT DATE: 2019
